FAERS Safety Report 9695449 (Version 1)
Quarter: 2013Q4

REPORT INFORMATION
  Report Type: Spontaneous
  Country: US (occurrence: None)
  Receive Date: 20131118
  Receipt Date: 20131118
  Transmission Date: 20140711
  Serious: Yes (Other)
  Sender: FDA-Public Use
  Company Number: None

PATIENT
  Age: 6 Year
  Sex: Male
  Weight: 29 kg

DRUGS (2)
  1. MONTELUKAST [Suspect]
     Indication: ASTHMA
     Route: 048
     Dates: start: 20131104, end: 20131106
  2. MONTELUKAST [Suspect]
     Route: 048
     Dates: start: 20131104, end: 20131106

REACTIONS (1)
  - Vomiting [None]
